FAERS Safety Report 8837089 (Version 1)
Quarter: 2012Q4

REPORT INFORMATION
  Report Type: Spontaneous
  Country: US (occurrence: None)
  Receive Date: 20121011
  Receipt Date: 20121011
  Transmission Date: 20130627
  Serious: Yes (Hospitalization, Disabling)
  Sender: FDA-Public Use
  Company Number: None

PATIENT
  Age: 28 Year
  Sex: Female
  Weight: 47.63 kg

DRUGS (1)
  1. MIRENA IUD [Suspect]
     Indication: CONTRACEPTION
     Dates: start: 20070515, end: 20121010

REACTIONS (7)
  - Device dislocation [None]
  - Device dislocation [None]
  - Abdominal pain [None]
  - Ruptured ectopic pregnancy [None]
  - Haemorrhage [None]
  - Exposure during pregnancy [None]
  - Ectopic pregnancy with intrauterine device [None]
